FAERS Safety Report 5928244-8 (Version None)
Quarter: 2008Q4

REPORT INFORMATION
  Report Type: 
  Country: None (occurrence: None)
  Receive Date: 20081023
  Receipt Date: 20081014
  Transmission Date: 20090506
  Serious: Yes (Hospitalization, Other)
  Sender: FDA-Public Use
  Company Number: US-ELI_LILLY_AND_COMPANY-US200810003325

PATIENT
  Age: 64 Year
  Sex: Male

DRUGS (10)
  1. XIGRIS [Suspect]
     Indication: SEPSIS
     Dosage: 24 D/F, OTHER
     Route: 042
     Dates: start: 20060828, end: 20060829
  2. XIGRIS [Suspect]
     Dosage: 18 D/F, FULL 96 HR INFUSION
     Route: 042
     Dates: start: 20060829, end: 20060902
  3. MEROPENEM [Concomitant]
     Indication: INFECTION
     Dates: start: 20060829
  4. VANCOMYCIN HCL [Concomitant]
     Indication: INFECTION
     Dosage: UNK, UNK
     Route: 042
     Dates: start: 20060829
  5. MEFOXIN [Concomitant]
     Indication: PROPHYLAXIS
     Dosage: 2 G, UNK
     Route: 042
     Dates: start: 20060827, end: 20060827
  6. METRONIDAZOLE [Concomitant]
     Indication: PROPHYLAXIS
     Dosage: 500 MG, UNK
     Route: 042
     Dates: start: 20060827, end: 20060827
  7. OXYGEN [Concomitant]
     Indication: HAEMODYNAMIC INSTABILITY
     Dates: start: 20060827
  8. VASOPRESSIN [Concomitant]
     Indication: HAEMODYNAMIC INSTABILITY
     Dates: start: 20060827
  9. NOREPINEPHRINE [Concomitant]
     Indication: HAEMODYNAMIC INSTABILITY
     Dates: start: 20060827
  10. PHENYLEPHRINE [Concomitant]
     Indication: HAEMODYNAMIC INSTABILITY
     Dates: start: 20060827

REACTIONS (9)
  - ADRENAL INSUFFICIENCY [None]
  - ESCHERICHIA BACTERAEMIA [None]
  - HAEMORRHAGE [None]
  - HYPOKALAEMIA [None]
  - METABOLIC ACIDOSIS [None]
  - MYOCARDIAL ISCHAEMIA [None]
  - PNEUMONIA PNEUMOCOCCAL [None]
  - RHABDOMYOLYSIS [None]
  - THROMBOCYTOPENIA [None]
